FAERS Safety Report 22700334 (Version 5)
Quarter: 2023Q4

REPORT INFORMATION
  Report Type: Spontaneous
  Country: US (occurrence: US)
  Receive Date: 20230713
  Receipt Date: 20231024
  Transmission Date: 20240109
  Serious: No
  Sender: FDA-Public Use
  Company Number: US-PFIZER INC-PV202300120265

PATIENT
  Age: 11 Year
  Sex: Male
  Weight: 35.374 kg

DRUGS (1)
  1. GENOTROPIN [Suspect]
     Active Substance: SOMATROPIN
     Indication: Growth hormone deficiency
     Dosage: 1.6 MG, 1X/DAY
     Dates: start: 20230406

REACTIONS (3)
  - Product dose omission issue [Unknown]
  - Device use error [Unknown]
  - Device issue [Unknown]
